FAERS Safety Report 17973226 (Version 1)
Quarter: 2020Q3

REPORT INFORMATION
  Report Type: Spontaneous
  Country: US (occurrence: US)
  Receive Date: 20200701
  Receipt Date: 20200701
  Transmission Date: 20201103
  Serious: Yes (Other)
  Sender: FDA-Public Use
  Company Number: None

PATIENT
  Age: 49 Year
  Sex: Male
  Weight: 71.1 kg

DRUGS (5)
  1. ATOMOXETINE, GENERIC OF STRATERRA [Suspect]
     Active Substance: ATOMOXETINE
     Indication: ATTENTION DEFICIT HYPERACTIVITY DISORDER
     Dosage: ?          QUANTITY:2 CAPSULE(S);?
     Route: 048
     Dates: start: 20191022, end: 20191218
  2. CONCERTA 72MG [Concomitant]
  3. SERTRALINE 50MG [Concomitant]
     Active Substance: SERTRALINE HYDROCHLORIDE
  4. CLONAZEPAM 2MG [Concomitant]
     Active Substance: CLONAZEPAM
  5. MELATONIN OTC [Concomitant]
     Active Substance: MELATONIN

REACTIONS (8)
  - Anxiety [None]
  - Abnormal behaviour [None]
  - Irritability [None]
  - Sleep deficit [None]
  - Delusion [None]
  - Hostility [None]
  - Mania [None]
  - Verbal abuse [None]

NARRATIVE: CASE EVENT DATE: 20191201
